FAERS Safety Report 10182810 (Version 2)
Quarter: 2014Q3

REPORT INFORMATION
  Report Type: Spontaneous
  Country: HU (occurrence: HU)
  Receive Date: 20140520
  Receipt Date: 20140710
  Transmission Date: 20150326
  Serious: Yes (Hospitalization, Other)
  Sender: FDA-Public Use
  Company Number: HU-SA-2014SA063976

PATIENT
  Age: 60 Year
  Sex: Female
  Weight: 64 kg

DRUGS (20)
  1. TENAXUM [Concomitant]
     Active Substance: RILMENIDINE
     Dosage: IN THE EVENING
  2. QUAMATEL [Concomitant]
     Dosage: IN THE EVENING
  3. MAGNESIUM [Concomitant]
     Active Substance: MAGNESIUM
     Dosage: IN THE EVENING
  4. TAXOTERE [Suspect]
     Active Substance: DOCETAXEL
     Indication: BREAST CANCER
     Route: 042
     Dates: start: 20130123, end: 20130507
  5. EPIRUBICIN [Suspect]
     Active Substance: EPIRUBICIN
     Indication: BREAST CANCER
     Route: 042
     Dates: start: 20130123, end: 20130507
  6. BRINALDIX [Concomitant]
     Dosage: IN THE MORNING
  7. CO-RENITEC [Concomitant]
     Active Substance: ENALAPRIL\HYDROCHLOROTHIAZIDE
     Dosage: IN THE MORNING
  8. POTASSIUM [Concomitant]
     Active Substance: POTASSIUM
  9. ASPIRIN. [Concomitant]
     Active Substance: ASPIRIN
     Dosage: AT NOON
  10. TAXOTERE [Suspect]
     Active Substance: DOCETAXEL
     Indication: BREAST CANCER
     Route: 042
     Dates: start: 20130123, end: 20130507
  11. INSUMAN RAPID [Concomitant]
     Active Substance: INSULIN HUMAN
     Dosage: 16U-14U-14U
  12. CITALOPRAM [Concomitant]
     Active Substance: CITALOPRAM HYDROBROMIDE
     Dosage: HALF IN THE MORNING
  13. FRONTIN [Concomitant]
     Active Substance: ALPRAZOLAM
     Dosage: IN THE MORNING
  14. CAPECITABINE [Suspect]
     Active Substance: CAPECITABINE
     Indication: BREAST CANCER
     Route: 048
     Dates: start: 20130123, end: 20130507
  15. THIOGAMMA [Concomitant]
     Dosage: IN THE MORNING
  16. MILGAMMA [Concomitant]
     Active Substance: VITAMIN B
     Dosage: AT NOON
  17. NORVASC [Concomitant]
     Active Substance: AMLODIPINE BESYLATE
     Dosage: AT NOON
  18. ROSUVASTATIN [Concomitant]
     Active Substance: ROSUVASTATIN
  19. ROSUVASTATIN CALCIUM [Concomitant]
     Active Substance: ROSUVASTATIN CALCIUM
     Dosage: IN THE EVENING
  20. INSUMAN BASAL [Concomitant]
     Dosage: DOSE:24 UNIT(S)

REACTIONS (14)
  - Hypovolaemic shock [Unknown]
  - Wound necrosis [Recovered/Resolved]
  - Nausea [Unknown]
  - Blood pressure fluctuation [Unknown]
  - Vomiting [Unknown]
  - Fall [Unknown]
  - Hypotension [Recovered/Resolved]
  - Asthenia [Unknown]
  - Fatigue [Unknown]
  - Urinary tract infection [Recovered/Resolved]
  - Angiopathy [Unknown]
  - Neutropenia [Unknown]
  - Renal failure [Recovered/Resolved]
  - Poor peripheral circulation [Unknown]

NARRATIVE: CASE EVENT DATE: 2013
